FAERS Safety Report 15192099 (Version 1)
Quarter: 2018Q3

REPORT INFORMATION
  Report Type: Spontaneous
  Country: US (occurrence: US)
  Receive Date: 20180626
  Receipt Date: 20180626
  Transmission Date: 20181010
  Serious: No
  Sender: FDA-Public Use
  Company Number: None

PATIENT
  Age: 1 Year
  Sex: Male

DRUGS (2)
  1. AKOVAZ [Suspect]
     Active Substance: EPHEDRINE SULFATE
  2. EPHEDRINE. [Suspect]
     Active Substance: EPHEDRINE

REACTIONS (1)
  - Product use complaint [None]
